FAERS Safety Report 5640761-7 (Version None)
Quarter: 2008Q1

REPORT INFORMATION
  Report Type: 
  Country: None (occurrence: None)
  Receive Date: 20080225
  Receipt Date: 20080211
  Transmission Date: 20080703
  Serious: Yes (Other)
  Sender: FDA-Public Use
  Company Number: CERZ-1000029

PATIENT
  Age: 63 Year
  Sex: Male
  Weight: 85.5 kg

DRUGS (3)
  1. CEREZYME [Suspect]
     Indication: GAUCHER'S DISEASE
     Dosage: 4600 U, Q2W, INTRAVENOUS
     Route: 042
     Dates: start: 20010801
  2. AREDIA [Suspect]
     Indication: OSTEOPOROSIS
     Dosage: 90 MG, Q4W, INTRAVENOUS
     Route: 042
     Dates: start: 20010101
  3. FORTEO [Concomitant]

REACTIONS (10)
  - ANAEMIA [None]
  - ARTHROPATHY [None]
  - BONE DENSITY DECREASED [None]
  - GAMMOPATHY [None]
  - HEPATITIS C [None]
  - HYPERSENSITIVITY [None]
  - INFUSION RELATED REACTION [None]
  - LIGAMENT DISORDER [None]
  - OSTEOPOROSIS [None]
  - TOOTH LOSS [None]
